FAERS Safety Report 4431229-4 (Version None)
Quarter: 2004Q3

REPORT INFORMATION
  Report Type: 
  Country: None (occurrence: None)
  Receive Date: 20040817
  Receipt Date: 20040811
  Transmission Date: 20050211
  Serious: Yes (Death, Hospitalization)
  Sender: FDA-Public Use
  Company Number: 200412433GDS

PATIENT
  Sex: Female

DRUGS (3)
  1. ASPIRIN [Suspect]
     Indication: THROMBOSIS PROPHYLAXIS
     Dosage: QD
  2. ALLOPURINOL [Suspect]
  3. ANTI-DIABETICS [Concomitant]

REACTIONS (1)
  - STEVENS-JOHNSON SYNDROME [None]
